FAERS Safety Report 4330238-3 (Version None)
Quarter: 2004Q1

REPORT INFORMATION
  Report Type: 
  Country: None (occurrence: None)
  Receive Date: 20040329
  Receipt Date: 20040312
  Transmission Date: 20041129
  Serious: Yes (Hospitalization, Other)
  Sender: FDA-Public Use
  Company Number: 2004017170

PATIENT
  Age: 31 Year
  Sex: Female

DRUGS (2)
  1. NIFEDIPINE [Suspect]
     Indication: TOCOLYSIS
     Dosage: 60 MG (EVERY 20 MINUTES X 3 DOSES), ORAL
     Route: 048
  2. BETAMETHASONE [Suspect]
     Indication: TOCOLYSIS

REACTIONS (15)
  - BREATH SOUNDS DECREASED [None]
  - CARDIAC MURMUR [None]
  - COMPLICATIONS OF MATERNAL EXPOSURE TO THERAPEUTIC DRUGS [None]
  - CYANOSIS [None]
  - FIBRIN D DIMER INCREASED [None]
  - HEART RATE INCREASED [None]
  - HYPOXIA [None]
  - METABOLIC ACIDOSIS [None]
  - MYOCARDIAL ISCHAEMIA [None]
  - OEDEMA PERIPHERAL [None]
  - RESPIRATORY ALKALOSIS [None]
  - RESPIRATORY DISTRESS [None]
  - URINE KETONE BODY [None]
  - VENOUS PRESSURE JUGULAR INCREASED [None]
  - WHITE BLOOD CELL COUNT INCREASED [None]
